FAERS Safety Report 8049775-3 (Version None)
Quarter: 2012Q1

REPORT INFORMATION
  Report Type: 
  Country: None (occurrence: None)
  Receive Date: 20120111
  Receipt Date: 20120104
  Transmission Date: 20120608
  Serious: Yes (Hospitalization, Other)
  Sender: FDA-Public Use
  Company Number: 2011SP040438

PATIENT
  Age: 55 Year
  Sex: Female

DRUGS (8)
  1. PROCRIT [Concomitant]
  2. PEG-INTRON [Suspect]
     Indication: HEPATITIS C
     Dosage: UNK;UNK, UNK;UNK, UNK;UNK, UNK;UNK
     Dates: start: 20110817
  3. PEG-INTRON [Suspect]
     Indication: HEPATITIS C
     Dosage: UNK;UNK, UNK;UNK, UNK;UNK, UNK;UNK
     Dates: start: 20080104, end: 20081003
  4. PEG-INTRON [Suspect]
     Indication: HEPATITIS C
     Dosage: UNK;UNK, UNK;UNK, UNK;UNK, UNK;UNK
     Dates: end: 20091007
  5. RIBAVIRIN [Suspect]
     Indication: HEPATITIS C
     Dosage: UNK;UNK, UNK;UNK, QD;UNK, QD;UNK
     Dates: start: 20080104, end: 20081003
  6. RIBAVIRIN [Suspect]
     Indication: HEPATITIS C
     Dosage: UNK;UNK, UNK;UNK, QD;UNK, QD;UNK
     Dates: start: 20110817
  7. RIBAVIRIN [Suspect]
     Indication: HEPATITIS C
     Dosage: UNK;UNK, UNK;UNK, QD;UNK, QD;UNK
     Dates: end: 20091007
  8. VICTRELIS [Suspect]
     Indication: HEPATITIS C
     Dosage: 800 MG;TID;PO
     Route: 048
     Dates: start: 20110914

REACTIONS (14)
  - FATIGUE [None]
  - NAUSEA [None]
  - CAPSULE PHYSICAL ISSUE [None]
  - DEATH OF RELATIVE [None]
  - ASTHENIA [None]
  - HEADACHE [None]
  - ANAEMIA [None]
  - GRIEF REACTION [None]
  - RASH [None]
  - WEIGHT DECREASED [None]
  - DYSPNOEA [None]
  - DYSGEUSIA [None]
  - PRODUCT QUALITY ISSUE [None]
  - DIABETES MELLITUS [None]
